APPROVED DRUG PRODUCT: RESERPINE AND HYDROCHLOROTHIAZIDE
Active Ingredient: HYDROCHLOROTHIAZIDE; RESERPINE
Strength: 50MG;0.125MG
Dosage Form/Route: TABLET;ORAL
Application: A088200 | Product #001
Applicant: SANDOZ INC
Approved: Jan 31, 1984 | RLD: No | RS: No | Type: DISCN